FAERS Safety Report 21888708 (Version 1)
Quarter: 2023Q1

REPORT INFORMATION
  Report Type: Spontaneous
  Country: US (occurrence: US)
  Receive Date: 20230120
  Receipt Date: 20230120
  Transmission Date: 20230417
  Serious: Yes (Hospitalization, Other)
  Sender: FDA-Public Use
  Company Number: US-CADILA HEALTHCARE LIMITED-US-ZYDUS-086799

PATIENT

DRUGS (1)
  1. OLANZAPINE [Suspect]
     Active Substance: OLANZAPINE
     Indication: Major depression
     Dosage: 7.5 MILLIGRAM
     Route: 065

REACTIONS (8)
  - Neurological symptom [Recovered/Resolved]
  - Hyporesponsive to stimuli [Recovered/Resolved]
  - Confusional state [Recovered/Resolved]
  - Sinus tachycardia [Unknown]
  - Mental status changes [Recovered/Resolved]
  - Delirium [Recovered/Resolved]
  - Overdose [Unknown]
  - Intentional product misuse [Unknown]
